FAERS Safety Report 11321028 (Version 1)
Quarter: 2015Q3

REPORT INFORMATION
  Report Type: Spontaneous
  Country: ES (occurrence: ES)
  Receive Date: 20150729
  Receipt Date: 20150729
  Transmission Date: 20151125
  Serious: Yes (Other)
  Sender: FDA-Public Use
  Company Number: ES-HOSPIRA-2817827

PATIENT
  Sex: Female

DRUGS (1)
  1. PACLITAXEL TEVA [Suspect]
     Active Substance: PACLITAXEL
     Indication: PRODUCT USED FOR UNKNOWN INDICATION
     Route: 042

REACTIONS (3)
  - Back pain [Recovered/Resolved]
  - Cyanosis [Recovered/Resolved]
  - Hypersensitivity [Recovered/Resolved]
